FAERS Safety Report 4922819-0 (Version None)
Quarter: 2006Q1

REPORT INFORMATION
  Report Type: 
  Country: None (occurrence: None)
  Receive Date: 20060224
  Receipt Date: 20030605
  Transmission Date: 20060701
  Serious: Yes (Death, Hospitalization, Disabling)
  Sender: FDA-Public Use
  Company Number: US-MERCK-0306USA00750

PATIENT
  Age: 63 Year
  Sex: Male
  Weight: 102 kg

DRUGS (3)
  1. VIOXX [Suspect]
     Indication: BACK PAIN
     Route: 048
     Dates: start: 20000601
  2. ULTRAM [Concomitant]
     Route: 065
     Dates: start: 20000612
  3. ZESTRIL [Concomitant]
     Route: 065
     Dates: start: 20000410

REACTIONS (10)
  - ANGINA PECTORIS [None]
  - ANXIETY [None]
  - COUGH [None]
  - DEATH [None]
  - DEPRESSION [None]
  - ENCEPHALOMALACIA [None]
  - HAEMANGIOMA [None]
  - MYOCARDIAL INFARCTION [None]
  - NERVOUSNESS [None]
  - PSORIASIS [None]
